FAERS Safety Report 6640447-6 (Version None)
Quarter: 2010Q1

REPORT INFORMATION
  Report Type: 
  Country: None (occurrence: None)
  Receive Date: 20100318
  Receipt Date: 20100309
  Transmission Date: 20100710
  Serious: Yes (Hospitalization)
  Sender: FDA-Public Use
  Company Number: GB-PFIZER INC-2010030136

PATIENT
  Age: 54 Year
  Sex: Male

DRUGS (13)
  1. CLINDAMYCIN PHOSPHATE [Suspect]
     Indication: CELLULITIS
     Dosage: 500 MG, UNK
     Route: 048
     Dates: start: 20090821, end: 20090825
  2. CHLORHEXIDINE GLUCONATE [Suspect]
     Route: 061
  3. HYDROMOL [Suspect]
     Indication: DRY SKIN
     Route: 061
  4. AMLODIPINE [Concomitant]
     Dosage: 5 MG, UNK
  5. CLOPIDOGREL [Concomitant]
     Dosage: 75 MG, UNK
  6. DOXAZOSIN [Concomitant]
     Dosage: 8 MG, UNK
  7. FLUCLOXACILLIN [Concomitant]
     Indication: CELLULITIS
     Dosage: 500 MG, UNK
     Route: 048
     Dates: start: 20090821, end: 20090828
  8. IRBESARTAN [Concomitant]
     Dosage: 300 MG, UNK
     Route: 048
  9. LANSOPRAZOLE [Concomitant]
     Dosage: 15 MG, UNK
     Route: 048
  10. METFORMIN [Concomitant]
     Dosage: 250 MG, UNK
  11. NOVOMIX [Concomitant]
     Dosage: UNK
     Route: 058
  12. PARACETAMOL [Concomitant]
     Dosage: 1 G, 4X/DAY
  13. SIMVASTATIN [Concomitant]
     Dosage: 40 MG, UNK
     Route: 048

REACTIONS (6)
  - CHILLS [None]
  - DERMATITIS EXFOLIATIVE [None]
  - ERYTHEMA [None]
  - SKIN EXFOLIATION [None]
  - SKIN FISSURES [None]
  - TACHYCARDIA [None]
